FAERS Safety Report 4985761-5 (Version None)
Quarter: 2006Q2

REPORT INFORMATION
  Report Type: 
  Country: None (occurrence: None)
  Receive Date: 20060421
  Receipt Date: 20060412
  Transmission Date: 20061013
  Serious: Yes (Other)
  Sender: FDA-Public Use
  Company Number: 2006050404

PATIENT
  Age: 57 Year
  Sex: Female
  Weight: 61 kg

DRUGS (4)
  1. AMLODIPINE [Suspect]
     Indication: ILL-DEFINED DISORDER
     Dosage: 5 MG , ORAL
     Route: 048
     Dates: start: 20060403, end: 20060403
  2. EZETIMIBE [Concomitant]
  3. SERETIDE            (FLUTICASONE PROPIONATE, SALMETEROL XINAFOATE) [Concomitant]
  4. CO-CODAMOL            (CODEINE PHOSPHATE, PARACETAMOL) [Concomitant]

REACTIONS (4)
  - ASTHMA [None]
  - PHARMACEUTICAL PRODUCT COMPLAINT [None]
  - THERAPEUTIC RESPONSE UNEXPECTED WITH DRUG SUBSTITUTION [None]
  - URTICARIA [None]
